FAERS Safety Report 6869354-0 (Version None)
Quarter: 2010Q3

REPORT INFORMATION
  Report Type: 
  Country: None (occurrence: None)
  Receive Date: 20100722
  Receipt Date: 20080724
  Transmission Date: 20110219
  Serious: Yes (Hospitalization, Other)
  Sender: FDA-Public Use
  Company Number: US-PFIZER INC-2008063102

PATIENT
  Sex: Female
  Weight: 46.7 kg

DRUGS (5)
  1. CHANTIX [Suspect]
     Indication: SMOKING CESSATION THERAPY
     Dosage: DAILY
     Dates: start: 20080112, end: 20080114
  2. BENZTROPINE MESYLATE [Suspect]
     Dosage: AT NIGHT
  3. HALDOL [Suspect]
     Indication: SCHIZOPHRENIA
     Dosage: AT NIGHT
  4. LEVOXYL [Suspect]
     Indication: HYPOTHYROIDISM
     Dosage: IN THE MORNINGS
  5. COGENTIN [Concomitant]

REACTIONS (7)
  - FATIGUE [None]
  - FEELING HOT [None]
  - HYPERHIDROSIS [None]
  - NIGHTMARE [None]
  - REFLEXES ABNORMAL [None]
  - SYNCOPE [None]
  - WRONG TECHNIQUE IN DRUG USAGE PROCESS [None]
